FAERS Safety Report 5518938-0 (Version None)
Quarter: 2007Q4

REPORT INFORMATION
  Report Type: 
  Country: None (occurrence: None)
  Receive Date: 20071113
  Receipt Date: 20071113
  Transmission Date: 20080405
  Serious: Yes (Hospitalization)
  Sender: FDA-Public Use
  Company Number: None

PATIENT
  Age: 80 Year
  Sex: Female

DRUGS (2)
  1. PACLITAXEL [Suspect]
     Indication: GASTRIC CANCER
  2. INSULIN [Concomitant]

REACTIONS (2)
  - MUSCULAR WEAKNESS [None]
  - NEUROPATHY [None]
